FAERS Safety Report 16634425 (Version 5)
Quarter: 2020Q2

REPORT INFORMATION
  Report Type: Report from Study
  Country: US (occurrence: US)
  Receive Date: 20190726
  Receipt Date: 20200417
  Transmission Date: 20200713
  Serious: Yes (Other)
  Sender: FDA-Public Use
  Company Number: PHEH2019US030553

PATIENT
  Sex: Male

DRUGS (1)
  1. COSENTYX [Suspect]
     Active Substance: SECUKINUMAB
     Indication: PSORIATIC ARTHROPATHY
     Dosage: 300 MG, QW
     Route: 058

REACTIONS (7)
  - Coronary artery occlusion [Unknown]
  - Psoriasis [Unknown]
  - Dermatitis contact [Unknown]
  - Pruritus [Unknown]
  - Gastroenteritis viral [Unknown]
  - Weight decreased [Unknown]
  - Sinusitis [Unknown]
